FAERS Safety Report 24670954 (Version 1)
Quarter: 2024Q4

REPORT INFORMATION
  Report Type: Spontaneous
  Country: US (occurrence: US)
  Receive Date: 20241127
  Receipt Date: 20241127
  Transmission Date: 20250114
  Serious: Yes (Hospitalization)
  Sender: ALKERMES
  Company Number: US-ALKERMES INC.-ALK-2024-002961

PATIENT
  Age: 36 Year
  Sex: Male
  Weight: 88.435 kg

DRUGS (1)
  1. VIVITROL [Suspect]
     Active Substance: NALTREXONE
     Indication: Alcoholism
     Dosage: 380 MILLIGRAM, QMO
     Route: 030
     Dates: start: 20240505, end: 20240505

REACTIONS (5)
  - Stab wound [Recovered/Resolved]
  - Splenectomy [Recovered/Resolved]
  - Pancreatic injury [Recovered/Resolved]
  - Alcohol use [Unknown]
  - Treatment noncompliance [Unknown]

NARRATIVE: CASE EVENT DATE: 20240501
